FAERS Safety Report 15843871 (Version 2)
Quarter: 2019Q1

REPORT INFORMATION
  Report Type: Spontaneous
  Country: IT (occurrence: IT)
  Receive Date: 20190118
  Receipt Date: 20190316
  Transmission Date: 20190417
  Serious: Yes (Hospitalization)
  Sender: FDA-Public Use
  Company Number: PHHY2019IT004711

PATIENT
  Age: 68 Year
  Sex: Female

DRUGS (3)
  1. LEVETIRACETAM. [Suspect]
     Active Substance: LEVETIRACETAM
     Dosage: 250 MG, BID
     Route: 065
  2. LEVETIRACETAM. [Suspect]
     Active Substance: LEVETIRACETAM
     Indication: GENERALISED TONIC-CLONIC SEIZURE
     Dosage: 500 MG, UNK
     Route: 065
  3. ALPRAZOLAM. [Suspect]
     Active Substance: ALPRAZOLAM
     Indication: SLEEP DISORDER
     Route: 065

REACTIONS (7)
  - Sleep disorder [Recovering/Resolving]
  - Acute psychosis [Recovering/Resolving]
  - Somnolence [Recovering/Resolving]
  - Agitation [Recovering/Resolving]
  - Delusion [Recovering/Resolving]
  - Hallucination, visual [Recovering/Resolving]
  - Rebound effect [Unknown]
